FAERS Safety Report 4990551-3 (Version None)
Quarter: 2006Q2

REPORT INFORMATION
  Report Type: 
  Country: None (occurrence: None)
  Receive Date: 20060427
  Receipt Date: 20060415
  Transmission Date: 20061013
  Serious: Yes (Other)
  Sender: FDA-Public Use
  Company Number: 2006011141

PATIENT
  Age: 53 Year
  Sex: Male
  Weight: 92.9874 kg

DRUGS (6)
  1. NEURONTIN [Suspect]
     Indication: ARACHNOIDITIS
     Dosage: 3600 MG (1 IN 1 D),
  2. NEURONTIN [Suspect]
     Indication: NEURALGIA
     Dosage: 3600 MG (1 IN 1 D),
  3. LYRICA [Suspect]
     Indication: ILL-DEFINED DISORDER
     Dosage: (75 MG,)
     Dates: start: 20050901, end: 20050101
  4. DILAUDID        (HYDROMORPONE HYDROCHLORIDE) [Concomitant]
  5. NEXIUM [Concomitant]
  6. BUPIVACAINE [Concomitant]

REACTIONS (16)
  - ANXIETY [None]
  - CONFUSIONAL STATE [None]
  - DEPRESSION [None]
  - DEVICE FAILURE [None]
  - DISCOMFORT [None]
  - DRUG EFFECT INCREASED [None]
  - DRUG INEFFECTIVE [None]
  - DRUG WITHDRAWAL SYNDROME [None]
  - FEELING ABNORMAL [None]
  - INFLUENZA LIKE ILLNESS [None]
  - INTENTIONAL DRUG MISUSE [None]
  - MEMORY IMPAIRMENT [None]
  - MENTAL IMPAIRMENT [None]
  - MOOD SWINGS [None]
  - NEURALGIA [None]
  - PAIN [None]
